FAERS Safety Report 17030117 (Version 3)
Quarter: 2021Q2

REPORT INFORMATION
  Report Type: Report from Study
  Country: US (occurrence: US)
  Receive Date: 20191114
  Receipt Date: 20210415
  Transmission Date: 20210716
  Serious: Yes (Hospitalization, Other)
  Sender: FDA-Public Use
  Company Number: US-INSMED, INC.-US-INS-19-01980

PATIENT
  Age: 77 Year
  Sex: Female

DRUGS (8)
  1. ARIKAYCE [Suspect]
     Active Substance: AMIKACIN
     Indication: MYCOBACTERIUM AVIUM COMPLEX INFECTION
     Dosage: 590 MILLIGRAM, QD
     Route: 055
     Dates: start: 201906, end: 20190616
  2. PREDNISONE. [Suspect]
     Active Substance: PREDNISONE
     Indication: PRODUCT USED FOR UNKNOWN INDICATION
  3. ARIKAYCE [Suspect]
     Active Substance: AMIKACIN
     Dosage: 590 MILLIGRAM, FIVE TIMES A WEEK
     Route: 055
     Dates: start: 2019, end: 2019
  4. ARIKAYCE [Suspect]
     Active Substance: AMIKACIN
     Dosage: 590 MILLIGRAM, TIW
     Route: 055
     Dates: start: 2019
  5. ETHAMBUTOL [Concomitant]
     Active Substance: ETHAMBUTOL HYDROCHLORIDE
     Indication: MYCOBACTERIUM AVIUM COMPLEX INFECTION
  6. ARIKAYCE [Suspect]
     Active Substance: AMIKACIN
     Dosage: 590 MILIGRAM, USING ARIKAYCE WHENEVER SHE CAN
     Route: 055
     Dates: start: 2020, end: 20201230
  7. ARIKAYCE [Suspect]
     Active Substance: AMIKACIN
     Dosage: 590 MILLIGRAM, TIW
     Route: 055
     Dates: start: 20190616, end: 2019
  8. AZITHROMYCIN ANHYDROUS. [Concomitant]
     Active Substance: AZITHROMYCIN ANHYDROUS
     Indication: MYCOBACTERIUM AVIUM COMPLEX INFECTION
     Dosage: UNK UNK, QD

REACTIONS (21)
  - Hypersensitivity [Unknown]
  - Tongue discomfort [Unknown]
  - Aphonia [Unknown]
  - Throat irritation [Unknown]
  - Cough [Unknown]
  - Therapy interrupted [Unknown]
  - Tremor [Unknown]
  - Migraine [Unknown]
  - Malaise [Unknown]
  - Hospitalisation [Unknown]
  - Pulmonary pain [Recovered/Resolved]
  - Intentional product misuse [Unknown]
  - Oropharyngeal pain [Recovering/Resolving]
  - Nausea [Recovered/Resolved]
  - Staphylococcal infection [Recovering/Resolving]
  - Femur fracture [Unknown]
  - Pneumonia [Recovering/Resolving]
  - Vertigo [Recovered/Resolved]
  - Dyspnoea [Unknown]
  - Decubitus ulcer [Unknown]
  - Wrong technique in product usage process [Unknown]

NARRATIVE: CASE EVENT DATE: 2019
